FAERS Safety Report 4973174-1 (Version None)
Quarter: 2006Q2

REPORT INFORMATION
  Report Type: 
  Country: None (occurrence: None)
  Receive Date: 20060414
  Receipt Date: 20051109
  Transmission Date: 20061013
  Serious: Yes (Hospitalization, Disabling, Other)
  Sender: FDA-Public Use
  Company Number: US-MERCK-0511USA01573

PATIENT
  Age: 58 Year
  Sex: Male
  Weight: 82 kg

DRUGS (5)
  1. VIOXX [Suspect]
     Indication: RHEUMATOID ARTHRITIS
     Route: 048
     Dates: start: 20020215, end: 20020601
  2. VIOXX [Suspect]
     Route: 048
     Dates: start: 20021015, end: 20030411
  3. ZANTAC [Concomitant]
     Route: 065
  4. LOTREL [Concomitant]
     Indication: RHEUMATOID ARTHRITIS
     Route: 065
  5. REMICADE [Concomitant]
     Route: 065

REACTIONS (10)
  - ARTHRITIS [None]
  - CARDIAC DISORDER [None]
  - COCCIDIOIDOMYCOSIS [None]
  - GALLBLADDER DISORDER [None]
  - LEUKOPENIA [None]
  - MYOCARDIAL INFARCTION [None]
  - ONYCHOMYCOSIS [None]
  - PNEUMONITIS [None]
  - RHEUMATOID ARTHRITIS [None]
  - THROMBOCYTOPENIA [None]
